FAERS Safety Report 23753854 (Version 3)
Quarter: 2024Q2

REPORT INFORMATION
  Report Type: Spontaneous
  Country: US (occurrence: US)
  Receive Date: 20240417
  Receipt Date: 20240430
  Transmission Date: 20240716
  Serious: Yes (Other)
  Sender: FDA-Public Use
  Company Number: US-PFIZER INC-202400085471

PATIENT
  Age: 46 Year
  Sex: Male
  Weight: 69.85 kg

DRUGS (2)
  1. CLINDAMYCIN HYDROCHLORIDE [Suspect]
     Active Substance: CLINDAMYCIN HYDROCHLORIDE
     Indication: Infection
     Dosage: UNK UNK, 4X/DAY
     Route: 048
     Dates: start: 20221123, end: 20221125
  2. CLINDAMYCIN HYDROCHLORIDE [Suspect]
     Active Substance: CLINDAMYCIN HYDROCHLORIDE
     Dosage: UNK UNK, 4X/DAY
     Route: 048
     Dates: start: 20221205, end: 202212

REACTIONS (18)
  - Diarrhoea [Not Recovered/Not Resolved]
  - Dehydration [Recovering/Resolving]
  - Weight decreased [Unknown]
  - Acute kidney injury [Unknown]
  - Hallucination [Unknown]
  - Colon cancer [Not Recovered/Not Resolved]
  - Aortic arteriosclerosis [Unknown]
  - Nausea [Recovering/Resolving]
  - Vomiting [Recovering/Resolving]
  - Dyspnoea [Unknown]
  - Blood pressure decreased [Unknown]
  - Haemoptysis [Unknown]
  - Diverticulum [Unknown]
  - Arteriosclerosis [Unknown]
  - Hepatic steatosis [Unknown]
  - Splenic calcification [Unknown]
  - Platelet count increased [Unknown]
  - Presyncope [Unknown]

NARRATIVE: CASE EVENT DATE: 20220101
